FAERS Safety Report 19791218 (Version 1)
Quarter: 2021Q3

REPORT INFORMATION
  Report Type: Other
  Country: CA (occurrence: CA)
  Receive Date: 20210906
  Receipt Date: 20210906
  Transmission Date: 20211014
  Serious: Yes (Hospitalization)
  Sender: FDA-Public Use
  Company Number: CA-CELLTRION INC.-2021CA011849

PATIENT

DRUGS (28)
  1. RITUXIMAB. [Suspect]
     Active Substance: RITUXIMAB
     Dosage: UNK
     Route: 042
  2. VENTOLIN [Concomitant]
     Active Substance: ALBUTEROL SULFATE
  3. ACETYLSALICYLIC ACID [Concomitant]
     Active Substance: ASPIRIN
     Dosage: 80 MG, 1 EVERY 1 DAYS
     Route: 048
  4. DOMPERIDONE [Concomitant]
     Active Substance: DOMPERIDONE
  5. LYRICA [Concomitant]
     Active Substance: PREGABALIN
     Dosage: 150 MG, 2 EVERY 1 DAYS
     Route: 065
  6. TIOTROPIUM BROMIDE [Concomitant]
     Active Substance: TIOTROPIUM BROMIDE
  7. LASIX [Concomitant]
     Active Substance: FUROSEMIDE
     Dosage: 20 MG, 1 EVERY 1 DAYS
     Route: 065
  8. MACROGOL [Concomitant]
     Active Substance: POLYETHYLENE GLYCOLS
  9. PREGABALIN. [Concomitant]
     Active Substance: PREGABALIN
  10. BOTULINUM TOXIN TYPE A [Concomitant]
     Active Substance: BOTULINUM TOXIN TYPE A
     Indication: RAYNAUD^S PHENOMENON
     Dosage: UNK
     Route: 065
  11. CALCIUM [Concomitant]
     Active Substance: CALCIUM
     Dosage: 500 MG
     Route: 065
  12. CARDIZEM CD [Concomitant]
     Active Substance: DILTIAZEM HYDROCHLORIDE
     Dosage: 240 MG 1 EVERY 1 DAYS
     Route: 065
  13. CIALIS [Concomitant]
     Active Substance: TADALAFIL
     Dosage: 20 MG, 1 EVERY 1 DAYS
     Route: 065
  14. PERINDOPRIL [Concomitant]
     Active Substance: PERINDOPRIL
     Dosage: 2 MG, 1 EVERY 1 DAYS
     Route: 065
  15. SALMETEROL XINAFOATE [Concomitant]
     Active Substance: SALMETEROL XINAFOATE
  16. ATORVASTATIN CALCIUM. [Concomitant]
     Active Substance: ATORVASTATIN CALCIUM
     Dosage: 10 MG, 1 EVERY 1 DAYS
     Route: 065
  17. BENADRYL [Concomitant]
     Active Substance: DIPHENHYDRAMINE HYDROCHLORIDE
     Dosage: 50 MG
     Route: 048
  18. ERGOCALCIFEROL. [Concomitant]
     Active Substance: ERGOCALCIFEROL
     Dosage: 10000.0 INTERNATIONAL UNIT, 1 EVERY 1 WEEK
     Route: 065
  19. METHYLPREDNISOLONE SODIUM SUCCINATE. [Concomitant]
     Active Substance: METHYLPREDNISOLONE SODIUM SUCCINATE
     Dosage: 100.0 MILLIGRAM
     Route: 042
  20. TYLENOL [Concomitant]
     Active Substance: ACETAMINOPHEN
     Dosage: 650.0 MG
     Route: 048
  21. ZOLEDRONIC ACID [Concomitant]
     Active Substance: ZOLEDRONIC ACID
     Dosage: 5 MG
     Route: 042
  22. RITUXIMAB. [Suspect]
     Active Substance: RITUXIMAB
     Indication: SYSTEMIC SCLERODERMA
     Dosage: 1000 MG
     Route: 042
  23. MYCOPHENOLATE MOFETIL. [Suspect]
     Active Substance: MYCOPHENOLATE MOFETIL
     Indication: SYSTEMIC SCLERODERMA
     Dosage: 1.5 GRAM, 2 EVERY 1 DAY
     Route: 065
  24. COLACE [Concomitant]
     Active Substance: DOCUSATE SODIUM
  25. PANTOLOC [PANTOPRAZOLE] [Concomitant]
     Active Substance: PANTOPRAZOLE SODIUM
     Dosage: 40 MG, 1 EVERY 1 DAYS
     Route: 065
  26. SENOKOT [Concomitant]
     Active Substance: SENNOSIDES
  27. IRON [Concomitant]
     Active Substance: IRON
  28. MOTILIUM [Concomitant]
     Active Substance: DOMPERIDONE
     Dosage: 10 MG, 4 EVERY 1 DAYS
     Route: 065

REACTIONS (3)
  - Cardiac disorder [Unknown]
  - Off label use [Unknown]
  - Superinfection [Unknown]
